FAERS Safety Report 5001761-3 (Version None)
Quarter: 2006Q2

REPORT INFORMATION
  Report Type: 
  Country: None (occurrence: None)
  Receive Date: 20060515
  Receipt Date: 20060505
  Transmission Date: 20061013
  Serious: Yes (Other)
  Sender: FDA-Public Use
  Company Number: DE-JNJFOC-20060501758

PATIENT
  Sex: Female

DRUGS (1)
  1. SEMPERA [Suspect]
     Indication: FUNGAL INFECTION
     Route: 048

REACTIONS (1)
  - LEUKOPENIA [None]
